FAERS Safety Report 6400793-8 (Version None)
Quarter: 2009Q4

REPORT INFORMATION
  Report Type: 
  Country: None (occurrence: None)
  Receive Date: 20091009
  Receipt Date: 20091005
  Transmission Date: 20100525
  Serious: Yes (Other)
  Sender: FDA-Public Use
  Company Number: 1000009289

PATIENT
  Age: 43 Year
  Sex: Female

DRUGS (15)
  1. SAVELLA [Suspect]
     Indication: FIBROMYALGIA
     Dosage: 12.5 MG (12.5 MG, 1 IN 1 D), ORAL; 25 MG (12.5 MG, 2 IN 1 D), ORAL; 50 MG (25 MG, 2 IN 1 D), ORAL
     Route: 048
     Dates: start: 20090916, end: 20090916
  2. SAVELLA [Suspect]
     Indication: FIBROMYALGIA
     Dosage: 12.5 MG (12.5 MG, 1 IN 1 D), ORAL; 25 MG (12.5 MG, 2 IN 1 D), ORAL; 50 MG (25 MG, 2 IN 1 D), ORAL
     Route: 048
     Dates: start: 20090917, end: 20090918
  3. SAVELLA [Suspect]
     Indication: FIBROMYALGIA
     Dosage: 12.5 MG (12.5 MG, 1 IN 1 D), ORAL; 25 MG (12.5 MG, 2 IN 1 D), ORAL; 50 MG (25 MG, 2 IN 1 D), ORAL
     Route: 048
     Dates: start: 20090919, end: 20090922
  4. SAVELLA [Suspect]
     Indication: FIBROMYALGIA
     Dosage: 100 MG (50 MG, 2 IN 1 D), ORAL
     Route: 048
     Dates: start: 20090923, end: 20091001
  5. BENAZEPRIL HYDROCHLORIDE [Suspect]
     Indication: HYPERTENSION
  6. OXYCONTIN [Concomitant]
  7. IMITREX [Concomitant]
  8. LEXAPRO [Concomitant]
  9. RELPAX [Concomitant]
  10. ESTRADIOL [Concomitant]
  11. DIOVAN [Concomitant]
  12. NEURONTIN [Concomitant]
  13. LORAZEPAM [Concomitant]
  14. DYAZIDE [Concomitant]
  15. DALMANE [Concomitant]

REACTIONS (2)
  - ANAPHYLACTIC REACTION [None]
  - PHARYNGEAL OEDEMA [None]
